FAERS Safety Report 6502796-1 (Version None)
Quarter: 2009Q4

REPORT INFORMATION
  Report Type: 
  Country: None (occurrence: None)
  Receive Date: 20091127
  Receipt Date: 20090820
  Transmission Date: 20100525
  Serious: No
  Sender: FDA-Public Use
  Company Number: 001593

PATIENT
  Age: 21 Year
  Sex: Female

DRUGS (2)
  1. LACOSAMIDE [Suspect]
     Indication: CONVULSION
     Dosage: ORAL
     Route: 048
  2. KEPPRA [Suspect]

REACTIONS (2)
  - DISTURBANCE IN SEXUAL AROUSAL [None]
  - ORGASMIC SENSATION DECREASED [None]
